FAERS Safety Report 17746398 (Version 1)
Quarter: 2020Q2

REPORT INFORMATION
  Report Type: Spontaneous
  Country: US (occurrence: US)
  Receive Date: 20200505
  Receipt Date: 20200505
  Transmission Date: 20200714
  Serious: No
  Sender: FDA-Public Use
  Company Number: US-ELI_LILLY_AND_COMPANY-US202005000329

PATIENT
  Age: 56 Year
  Sex: Male

DRUGS (6)
  1. INSULIN LISPRO [Suspect]
     Active Substance: INSULIN LISPRO
     Indication: DIABETES MELLITUS
     Dosage: UNK UNK, UNKNOWN
     Route: 065
  2. HUMALOG MIX75/25 [Suspect]
     Active Substance: INSULIN LISPRO
     Dosage: 15 U, BID
     Route: 065
  3. HUMALOG MIX75/25 [Suspect]
     Active Substance: INSULIN LISPRO
     Indication: DIABETES MELLITUS
     Dosage: 15 U, BID
     Route: 065
     Dates: start: 202002
  4. HUMALOG MIX75/25 [Suspect]
     Active Substance: INSULIN LISPRO
     Dosage: 15 U, BID
     Route: 065
  5. HUMALOG MIX75/25 [Suspect]
     Active Substance: INSULIN LISPRO
     Indication: DIABETES MELLITUS
     Dosage: 15 U, BID
     Route: 065
     Dates: start: 202002
  6. INSULIN LISPRO [Suspect]
     Active Substance: INSULIN LISPRO
     Dosage: UNK UNK, UNKNOWN
     Route: 065

REACTIONS (5)
  - Feeling abnormal [Unknown]
  - Blood glucose increased [Unknown]
  - Malaise [Unknown]
  - Wrong product administered [Unknown]
  - Nervousness [Unknown]

NARRATIVE: CASE EVENT DATE: 202004
